FAERS Safety Report 5414954-8 (Version None)
Quarter: 2007Q3

REPORT INFORMATION
  Report Type: 
  Country: None (occurrence: None)
  Receive Date: 20070813
  Receipt Date: 20070813
  Transmission Date: 20080115
  Serious: Yes (Disabling, Other)
  Sender: FDA-Public Use
  Company Number: None

PATIENT
  Sex: Male
  Weight: 77.1115 kg

DRUGS (1)
  1. PREVIDENT 5000 PLUS-COLGATE [Suspect]
     Indication: DENTAL CARE
     Dosage: ONCE DAILY
     Dates: start: 20020215, end: 20070401

REACTIONS (3)
  - ARTHRALGIA [None]
  - TONGUE BLACK HAIRY [None]
  - TOOTH DISORDER [None]
